FAERS Safety Report 8519212-0 (Version None)
Quarter: 2012Q3

REPORT INFORMATION
  Report Type: 
  Country: None (occurrence: None)
  Receive Date: 20120718
  Receipt Date: 20120711
  Transmission Date: 20120928
  Serious: Yes (Other)
  Sender: FDA-Public Use
  Company Number: GR-ABBOTT-12P-066-0955174-00

PATIENT
  Age: 78 Year
  Sex: Female
  Weight: 69 kg

DRUGS (7)
  1. ARTICLOX [Concomitant]
     Indication: ANAEMIA
     Route: 030
     Dates: start: 20100101
  2. LIPITOR [Concomitant]
     Indication: HYPERLIPIDAEMIA
     Route: 048
     Dates: start: 19970101
  3. PROLIA [Suspect]
     Indication: OSTEOPOROSIS
     Route: 058
     Dates: start: 20111101
  4. HUMIRA [Suspect]
     Indication: RHEUMATOID ARTHRITIS
     Route: 058
     Dates: end: 20111101
  5. SALOSPIR [Concomitant]
     Indication: HYPERTENSION
     Route: 048
     Dates: start: 20000101
  6. ONE-ALPHA [Concomitant]
     Indication: OSTEOPENIA
     Route: 048
  7. MEGA-CALCIUM [Concomitant]
     Indication: OSTEOPENIA
     Route: 048

REACTIONS (8)
  - SKIN OEDEMA [None]
  - DERMATITIS PSORIASIFORM [None]
  - PERIVASCULAR DERMATITIS [None]
  - PARAKERATOSIS [None]
  - LICHEN PLANUS [None]
  - HYPERKERATOSIS [None]
  - OSTEOPOROSIS [None]
  - ACANTHOSIS [None]
